FAERS Safety Report 8360331-X (Version None)
Quarter: 2012Q2

REPORT INFORMATION
  Report Type: 
  Country: None (occurrence: None)
  Receive Date: 20120515
  Receipt Date: 20120511
  Transmission Date: 20120825
  Serious: No
  Sender: FDA-Public Use
  Company Number: US-PFIZER INC-2012115775

PATIENT
  Sex: Female
  Weight: 72.562 kg

DRUGS (8)
  1. LYRICA [Suspect]
     Dosage: 200 MG, 2X/DAY
     Route: 048
  2. CALCIUM [Concomitant]
     Indication: BONE DISORDER
     Dosage: 1000 MG, DAILY
  3. LYRICA [Suspect]
     Dosage: 50 MG, UNK
     Route: 048
  4. FISH OIL [Concomitant]
     Indication: CARDIAC DISORDER
     Dosage: 600 MG, DAILY
  5. GLUCOSAMINE [Concomitant]
     Indication: CHONDROPATHY
     Dosage: 1200 MG, DAILY
     Route: 048
  6. LYRICA [Suspect]
     Dosage: 70 MG, UNK
     Route: 048
  7. LYRICA [Suspect]
     Indication: NERVOUS SYSTEM DISORDER
     Dosage: 25 MG, 2X/DAY
     Route: 048
  8. ACETYLSALICYLIC ACID [Concomitant]
     Dosage: 81 MG, DAILY

REACTIONS (2)
  - DRUG INEFFECTIVE [None]
  - ALOPECIA SCARRING [None]
